FAERS Safety Report 19608195 (Version 1)
Quarter: 2021Q3

REPORT INFORMATION
  Report Type: Spontaneous
  Country: US (occurrence: US)
  Receive Date: 20210723
  Receipt Date: 20210723
  Transmission Date: 20211014
  Serious: Yes (Other)
  Sender: FDA-Public Use
  Company Number: None

PATIENT
  Age: 13 Year
  Sex: Male

DRUGS (10)
  1. TACROLIMUS. [Suspect]
     Active Substance: TACROLIMUS
     Indication: URINARY TRACT INFECTION
     Route: 048
     Dates: start: 20200801
  2. TACROLIMUS. [Concomitant]
     Active Substance: TACROLIMUS
     Dates: start: 20210720
  3. PREGABALIN. [Concomitant]
     Active Substance: PREGABALIN
     Dates: start: 20210525
  4. FERROUS SULF [Concomitant]
     Active Substance: FERROUS SULFATE
     Dates: start: 20210420
  5. MYCOPHENOLATE [Concomitant]
     Active Substance: MYCOPHENOLIC ACID
     Dates: start: 20210722
  6. NIVESTYM [Concomitant]
     Active Substance: FILGRASTIM-AAFI
     Dates: start: 20210723
  7. PREGABALIN. [Concomitant]
     Active Substance: PREGABALIN
     Dates: start: 20210520
  8. OMEPRAZOLE. [Concomitant]
     Active Substance: OMEPRAZOLE
     Dates: start: 20210722
  9. TACROLIMUS. [Concomitant]
     Active Substance: TACROLIMUS
     Dates: start: 20210722
  10. PREGABALIN. [Concomitant]
     Active Substance: PREGABALIN
     Dates: start: 20210720

REACTIONS (2)
  - Vomiting [None]
  - Pyrexia [None]

NARRATIVE: CASE EVENT DATE: 20210722
